FAERS Safety Report 9242867 (Version 1)
Quarter: 2013Q2

REPORT INFORMATION
  Report Type: Spontaneous
  Country: US (occurrence: US)
  Receive Date: 20130419
  Receipt Date: 20130419
  Transmission Date: 20140414
  Serious: Yes (Hospitalization)
  Sender: FDA-Public Use
  Company Number: US-SANOFI-AVENTIS-2013SA039490

PATIENT
  Age: 94 Year
  Sex: Female

DRUGS (2)
  1. PLAVIX [Suspect]
     Dates: start: 1988
  2. ANTIDEPRESSANTS [Concomitant]

REACTIONS (5)
  - Arrhythmia [Recovered/Resolved]
  - Transient ischaemic attack [Recovered/Resolved]
  - Fall [Recovered/Resolved]
  - Foot fracture [Recovered/Resolved]
  - Adverse event [Recovered/Resolved]
